FAERS Safety Report 10442399 (Version 3)
Quarter: 2015Q2

REPORT INFORMATION
  Report Type: Spontaneous
  Country: US (occurrence: US)
  Receive Date: 20140909
  Receipt Date: 20150402
  Transmission Date: 20150821
  Serious: Yes (Hospitalization)
  Sender: FDA-Public Use
  Company Number: US-BAYER-2014-130329

PATIENT
  Age: 25 Year
  Sex: Female
  Weight: 117.91 kg

DRUGS (5)
  1. MIRENA [Suspect]
     Active Substance: LEVONORGESTREL
     Indication: CONTRACEPTION
     Dosage: 20 MCG/24HR, CONT
     Route: 015
     Dates: start: 20080605, end: 20111013
  2. XANAX [Concomitant]
     Active Substance: ALPRAZOLAM
  3. METFORMIN [Concomitant]
     Active Substance: METFORMIN HYDROCHLORIDE
     Indication: POLYCYSTIC OVARIES
     Dosage: 500 MG, UNK
     Route: 048
     Dates: start: 2004, end: 201408
  4. LISINOPRIL. [Concomitant]
     Active Substance: LISINOPRIL
     Indication: HYPERTENSION
     Dosage: 10 MG, UNK
     Route: 048
     Dates: start: 2004, end: 201408
  5. EFFEXOR [Concomitant]
     Active Substance: VENLAFAXINE HYDROCHLORIDE

REACTIONS (9)
  - Abortion spontaneous [None]
  - Injury [None]
  - Dyspareunia [None]
  - Pain [None]
  - Genital haemorrhage [None]
  - Vulvovaginal discomfort [None]
  - Embedded device [None]
  - Emotional distress [None]
  - Vaginal discharge [None]

NARRATIVE: CASE EVENT DATE: 200807
